FAERS Safety Report 6399386-0 (Version None)
Quarter: 2009Q4

REPORT INFORMATION
  Report Type: 
  Country: None (occurrence: None)
  Receive Date: 20091007
  Receipt Date: 20091007
  Transmission Date: 20100525
  Serious: Yes (Hospitalization)
  Sender: FDA-Public Use
  Company Number: None

PATIENT
  Sex: Male
  Weight: 64.8 kg

DRUGS (1)
  1. SORAFENIB [Suspect]
     Indication: PANCREATIC CARCINOMA METASTATIC
     Dosage: 400 MG PO BID X 7 DAYS
     Route: 048
     Dates: start: 20090929, end: 20091005

REACTIONS (3)
  - ARTHRALGIA [None]
  - LIVER FUNCTION TEST ABNORMAL [None]
  - NO THERAPEUTIC RESPONSE [None]
